FAERS Safety Report 20349596 (Version 1)
Quarter: 2022Q1

REPORT INFORMATION
  Report Type: Spontaneous
  Country: US (occurrence: None)
  Receive Date: 20220118
  Receipt Date: 20220118
  Transmission Date: 20220424
  Serious: No
  Sender: FDA-Public Use
  Company Number: None

PATIENT
  Age: 5 Year
  Sex: Female
  Weight: 15.9 kg

DRUGS (7)
  1. CABOZANTINIB [Suspect]
     Active Substance: CABOZANTINIB
  2. TIMOLOL MALEATE [Concomitant]
  3. OPHTHALMIC GEL [Concomitant]
  4. LATANOPROST [Concomitant]
  5. OPHTALMIC SOLUTION [Concomitant]
  6. ZOFRAN [Concomitant]
     Active Substance: ONDANSETRON HYDROCHLORIDE
  7. LEVOTHYROXINE [Concomitant]

REACTIONS (5)
  - Headache [None]
  - Eye pain [None]
  - Neurofibroma [None]
  - Condition aggravated [None]
  - Swelling [None]

NARRATIVE: CASE EVENT DATE: 20220112
